FAERS Safety Report 15375229 (Version 1)
Quarter: 2018Q3

REPORT INFORMATION
  Report Type: Spontaneous
  Country: GB (occurrence: GB)
  Receive Date: 20180912
  Receipt Date: 20180912
  Transmission Date: 20181010
  Serious: Yes (Hospitalization, Other)
  Sender: FDA-Public Use
  Company Number: GB-GLAXOSMITHKLINE-GB2018162849

PATIENT
  Age: 75 Year
  Sex: Male
  Weight: 98 kg

DRUGS (3)
  1. VENTOLIN [Suspect]
     Active Substance: ALBUTEROL SULFATE
     Indication: ASTHMA
     Dosage: UNK
     Route: 065
     Dates: start: 20171021
  2. ADENOSINE. [Concomitant]
     Active Substance: ADENOSINE
     Indication: CARDIAC DISORDER
     Dosage: UNK
     Route: 065
     Dates: start: 201805
  3. RANITIDINE. [Concomitant]
     Active Substance: RANITIDINE
     Indication: GASTROOESOPHAGEAL REFLUX DISEASE
     Dosage: 1 DF, QD
     Route: 065

REACTIONS (5)
  - Condition aggravated [Unknown]
  - Abnormal loss of weight [Unknown]
  - Oral candidiasis [Unknown]
  - Apnoea [Unknown]
  - Lung infection [Unknown]
